FAERS Safety Report 8297612-4 (Version None)
Quarter: 2012Q2

REPORT INFORMATION
  Report Type: 
  Country: None (occurrence: None)
  Receive Date: 20120419
  Receipt Date: 20120409
  Transmission Date: 20120825
  Serious: Yes (Other)
  Sender: FDA-Public Use
  Company Number: JP-JNJFOC-20120405539

PATIENT

DRUGS (3)
  1. RISPERDAL [Suspect]
     Indication: AGGRESSION
     Route: 048
  2. LAMISIL [Interacting]
     Indication: ONYCHOMYCOSIS
     Route: 065
  3. RISPERDAL [Suspect]
     Route: 048

REACTIONS (3)
  - DEPRESSION [None]
  - ONYCHOMYCOSIS [None]
  - DRUG INTERACTION [None]
